FAERS Safety Report 21245958 (Version 1)
Quarter: 2022Q3

REPORT INFORMATION
  Report Type: Spontaneous
  Country: US (occurrence: US)
  Receive Date: 20220824
  Receipt Date: 20220824
  Transmission Date: 20221027
  Serious: No
  Sender: FDA-Public Use
  Company Number: US-BRISTOL-MYERS SQUIBB COMPANY-2022-094252

PATIENT
  Age: 74 Year
  Sex: Female

DRUGS (2)
  1. POMALYST [Suspect]
     Active Substance: POMALIDOMIDE
     Indication: Amyloidosis
     Dosage: TAKE 1 CAP BY MOUTH DAILY. SWALLOW WHOLE WITH WATER. DO NOT BREAK OR OPEN AND TAKE AT SAME TIME EACH
     Route: 048
  2. PREDNISONE [Concomitant]
     Active Substance: PREDNISONE
     Route: 065

REACTIONS (3)
  - Fatigue [Unknown]
  - Red blood cell count decreased [Unknown]
  - Intentional product use issue [Unknown]
